FAERS Safety Report 4961498-3 (Version None)
Quarter: 2006Q1

REPORT INFORMATION
  Report Type: 
  Country: None (occurrence: None)
  Receive Date: 20060329
  Receipt Date: 20060315
  Transmission Date: 20060701
  Serious: Yes (Other)
  Sender: FDA-Public Use
  Company Number: S06-CAN-01244-01

PATIENT
  Age: 56 Year
  Sex: Female

DRUGS (5)
  1. CELEXA [Suspect]
     Dosage: 75 MG QD; PO
     Route: 048
  2. INDAPAMIDE [Concomitant]
  3. METOPROLOL [Concomitant]
  4. SYNTHROID [Concomitant]
  5. WELLBUTRIN [Concomitant]

REACTIONS (2)
  - HYPERHIDROSIS [None]
  - PRESCRIBED OVERDOSE [None]
